FAERS Safety Report 15757673 (Version 1)
Quarter: 2018Q4

REPORT INFORMATION
  Report Type: Report from Study
  Country: FI (occurrence: FI)
  Receive Date: 20181225
  Receipt Date: 20181225
  Transmission Date: 20190205
  Serious: Yes (Hospitalization)
  Sender: FDA-Public Use
  Company Number: FI-ROCHE-2232114

PATIENT
  Age: 58 Year
  Sex: Male
  Weight: 63.2 kg

DRUGS (6)
  1. COTRIMOXAZOLE [Concomitant]
     Active Substance: SULFAMETHOXAZOLE\TRIMETHOPRIM
     Dosage: 80/400 MG
     Route: 048
     Dates: start: 20180314
  2. ALLONOL [Concomitant]
     Active Substance: ALLOPURINOL
     Route: 048
     Dates: start: 20180216, end: 20180730
  3. FUROSEMIDE. [Concomitant]
     Active Substance: FUROSEMIDE
     Route: 042
     Dates: start: 20180314
  4. ZOVIRAX [Concomitant]
     Active Substance: ACYCLOVIR
     Route: 048
     Dates: start: 20180314, end: 20180320
  5. SOMAC [Concomitant]
     Active Substance: PANTOPRAZOLE SODIUM
     Route: 048
     Dates: start: 20180214
  6. OBINUTUZUMAB. [Suspect]
     Active Substance: OBINUTUZUMAB
     Indication: CHRONIC LYMPHOCYTIC LEUKAEMIA
     Dosage: HE RECEIVED THE MOST RECENT DOSE OF OBINUTUZUMAB PRIOR TO THE SERIOUS ADVERSE EVENT (HAEMOPHILUS INF
     Route: 042
     Dates: start: 20180314

REACTIONS (2)
  - Haemophilus infection [Recovered/Resolved]
  - Infusion related reaction [Recovered/Resolved]

NARRATIVE: CASE EVENT DATE: 20180315
